FAERS Safety Report 24732020 (Version 1)
Quarter: 2024Q4

REPORT INFORMATION
  Report Type: Spontaneous
  Country: US (occurrence: None)
  Receive Date: 20241213
  Receipt Date: 20241213
  Transmission Date: 20250114
  Serious: Yes (Hospitalization)
  Sender: Public
  Company Number: None

PATIENT
  Age: 77 Year
  Sex: Male

DRUGS (2)
  1. TAVNEOS [Suspect]
     Active Substance: AVACOPAN
     Dosage: FREQUENCY : TWICE A DAY;?
     Route: 048
     Dates: start: 20241206
  2. TAVNEOS [Concomitant]
     Active Substance: AVACOPAN
     Dates: start: 20241206

REACTIONS (3)
  - Renal disorder [None]
  - Chest pain [None]
  - Haemoglobin decreased [None]

NARRATIVE: CASE EVENT DATE: 20241212
